FAERS Safety Report 4835642-2 (Version None)
Quarter: 2005Q4

REPORT INFORMATION
  Report Type: 
  Country: None (occurrence: None)
  Receive Date: 20051121
  Receipt Date: 20051108
  Transmission Date: 20060501
  Serious: Yes (Hospitalization, Other)
  Sender: FDA-Public Use
  Company Number: 2005156629

PATIENT
  Age: 22 Year
  Sex: Female

DRUGS (1)
  1. ATARAX [Suspect]
     Indication: ILL-DEFINED DISORDER

REACTIONS (2)
  - DRUG LEVEL INCREASED [None]
  - SUICIDE ATTEMPT [None]
